FAERS Safety Report 20062580 (Version 1)
Quarter: 2021Q4

REPORT INFORMATION
  Report Type: Spontaneous
  Country: US (occurrence: US)
  Receive Date: 20211112
  Receipt Date: 20211112
  Transmission Date: 20220304
  Serious: No
  Sender: FDA-Public Use
  Company Number: US-BEH-2021137908

PATIENT
  Age: 67 Year
  Sex: Female

DRUGS (2)
  1. HIZENTRA [Suspect]
     Active Substance: HUMAN IMMUNOGLOBULIN G
     Indication: Immunodeficiency common variable
     Dosage: 30 GRAM, QOW
     Route: 058
     Dates: start: 20170812
  2. HIZENTRA [Suspect]
     Active Substance: HUMAN IMMUNOGLOBULIN G
     Indication: Immunodeficiency common variable

REACTIONS (4)
  - Infusion site extravasation [Unknown]
  - Recalled product administered [Unknown]
  - Infusion site erythema [Unknown]
  - Recalled product administered [Unknown]

NARRATIVE: CASE EVENT DATE: 20211030
